FAERS Safety Report 14488432 (Version 1)
Quarter: 2018Q1

REPORT INFORMATION
  Report Type: Spontaneous
  Country: LT (occurrence: LT)
  Receive Date: 20180205
  Receipt Date: 20180205
  Transmission Date: 20180509
  Serious: Yes (Life-Threatening, Hospitalization)
  Sender: FDA-Public Use
  Company Number: LT-TEVA-2018-LT-852006

PATIENT
  Age: 62 Year
  Sex: Male
  Weight: 90 kg

DRUGS (3)
  1. LERCANIDIPINE [Suspect]
     Active Substance: LERCANIDIPINE
     Route: 048
     Dates: end: 20171127
  2. NEBIVOLOL. [Suspect]
     Active Substance: NEBIVOLOL
     Route: 048
     Dates: end: 20171127
  3. PRENEWEL [Suspect]
     Active Substance: INDAPAMIDE\PERINDOPRIL ERBUMINE
     Route: 048
     Dates: end: 20171127

REACTIONS (3)
  - Asthenia [Recovered/Resolved]
  - Hypotension [Recovered/Resolved]
  - Bradycardia [Recovered/Resolved]

NARRATIVE: CASE EVENT DATE: 20171127
